FAERS Safety Report 7644543-6 (Version None)
Quarter: 2011Q3

REPORT INFORMATION
  Report Type: 
  Country: None (occurrence: None)
  Receive Date: 20110729
  Receipt Date: 20110725
  Transmission Date: 20111222
  Serious: Yes (Death, Other)
  Sender: FDA-Public Use
  Company Number: JP-ELI_LILLY_AND_COMPANY-JP201107002926

PATIENT
  Sex: Male
  Weight: 60 kg

DRUGS (26)
  1. ALIMTA [Suspect]
     Dosage: 840 MG, UNK
     Route: 042
     Dates: start: 20110406, end: 20110609
  2. GRAN [Concomitant]
     Dosage: 75 MG, UNK
     Route: 058
     Dates: start: 20110415, end: 20110417
  3. PANTOSIN [Concomitant]
  4. PANVITAN [Concomitant]
     Dosage: 1 G, UNK
     Route: 048
     Dates: start: 20110223, end: 20110615
  5. DECADRON [Concomitant]
     Dosage: 8 MG, UNK
     Route: 042
     Dates: start: 20110302, end: 20110609
  6. OXINORM [Concomitant]
     Dosage: UNK
     Route: 048
     Dates: start: 20110215
  7. CISPLATIN [Concomitant]
     Dosage: 100 MG, UNK
     Route: 042
     Dates: start: 20110406, end: 20110406
  8. MUCOSTA [Concomitant]
  9. MAGNESIUM SULFATE [Concomitant]
  10. ALIMTA [Suspect]
     Indication: LUNG CARCINOMA CELL TYPE UNSPECIFIED STAGE IV
     Dosage: 860 MG, UNK
     Route: 042
     Dates: start: 20110302, end: 20110302
  11. ALOXI [Concomitant]
     Dosage: 0.75 MG, UNK
     Route: 042
     Dates: start: 20110302, end: 20110609
  12. FENTANYL [Concomitant]
     Dosage: UNK
     Route: 062
     Dates: start: 20110215
  13. LASIX [Concomitant]
  14. LYRICA [Concomitant]
  15. SPIRIVA [Concomitant]
  16. PROCHLORPERAZINE [Concomitant]
  17. EMEND [Concomitant]
  18. CISPLATIN [Concomitant]
     Indication: LUNG CARCINOMA CELL TYPE UNSPECIFIED STAGE IV
     Dosage: 130 MG, UNK
     Route: 042
     Dates: start: 20110302, end: 20110302
  19. METHYCOBAL [Concomitant]
     Dosage: 1 MG, UNK
     Route: 030
     Dates: start: 20110301, end: 20110517
  20. ZOMETA [Concomitant]
     Dosage: 4 MG, UNK
     Route: 042
     Dates: start: 20110317, end: 20110609
  21. RIZE [Concomitant]
  22. HOKUNALIN [Concomitant]
  23. PRIMPERAN TAB [Concomitant]
  24. LOXONIN [Concomitant]
  25. FAMOTIDINE [Concomitant]
  26. FLOMOX [Concomitant]

REACTIONS (3)
  - WHITE BLOOD CELL COUNT DECREASED [None]
  - PLATELET COUNT DECREASED [None]
  - INTERSTITIAL LUNG DISEASE [None]
